FAERS Safety Report 5389269-7 (Version None)
Quarter: 2007Q3

REPORT INFORMATION
  Report Type: 
  Country: None (occurrence: None)
  Receive Date: 20070717
  Receipt Date: 20070709
  Transmission Date: 20080115
  Serious: Yes (Hospitalization, Disabling, Other)
  Sender: FDA-Public Use
  Company Number: FR-BAYER-200710395BFR

PATIENT
  Age: 43 Year
  Sex: Female

DRUGS (4)
  1. NEXAVAR [Suspect]
     Indication: RENAL CELL CARCINOMA STAGE UNSPECIFIED
     Dosage: TOTAL DAILY DOSE: 800 MG  UNIT DOSE: 200 MG
     Route: 048
     Dates: start: 20060323, end: 20060419
  2. NEXAVAR [Suspect]
     Dosage: TOTAL DAILY DOSE: 400 MG  UNIT DOSE: 200 MG
     Route: 048
     Dates: start: 20060428, end: 20061010
  3. FARLUTAL [Concomitant]
     Indication: RENAL CELL CARCINOMA STAGE UNSPECIFIED
     Dates: start: 20051201, end: 20060101
  4. AVASTIN [Concomitant]
     Indication: RENAL CELL CARCINOMA STAGE UNSPECIFIED
     Dates: start: 20060101, end: 20060301

REACTIONS (5)
  - BARTHOLIN'S ABSCESS [None]
  - DYSPNOEA [None]
  - RASH [None]
  - VULVAL DISORDER [None]
  - VULVAL ERYTHEMA [None]
